FAERS Safety Report 5448663-6 (Version None)
Quarter: 2007Q3

REPORT INFORMATION
  Report Type: 
  Country: None (occurrence: None)
  Receive Date: 20070906
  Receipt Date: 20070822
  Transmission Date: 20080115
  Serious: Yes (Hospitalization)
  Sender: FDA-Public Use
  Company Number: 2007-02409

PATIENT
  Age: 41 Year
  Sex: Female
  Weight: 49.5 kg

DRUGS (3)
  1. VELCADE [Suspect]
     Indication: MULTIPLE MYELOMA
     Dosage: 1.30 MG/M2, INTRAVENOUS
     Route: 042
     Dates: start: 20070213, end: 20070706
  2. DOXIL [Suspect]
     Indication: MULTIPLE MYELOMA
     Dosage: 20.00 MG/M2, INTRAVENOUS
     Route: 042
     Dates: start: 20070213, end: 20070703
  3. THALIDOMIDE [Suspect]
     Indication: MULTIPLE MYELOMA
     Dosage: 200.00 MG, ORAL
     Route: 048
     Dates: start: 20070213, end: 20070707

REACTIONS (6)
  - ANXIETY [None]
  - INCORRECT ROUTE OF DRUG ADMINISTRATION [None]
  - INTENTIONAL OVERDOSE [None]
  - PANIC ATTACK [None]
  - SUICIDE ATTEMPT [None]
  - TOXICOLOGIC TEST ABNORMAL [None]
